FAERS Safety Report 24315140 (Version 1)
Quarter: 2024Q3

REPORT INFORMATION
  Report Type: Spontaneous
  Country: US (occurrence: US)
  Receive Date: 20240913
  Receipt Date: 20240913
  Transmission Date: 20241017
  Serious: No
  Sender: MERCK
  Company Number: US-009507513-2408USA006444

PATIENT
  Sex: Female

DRUGS (1)
  1. PREVYMIS [Suspect]
     Active Substance: LETERMOVIR
     Indication: Antiviral prophylaxis

REACTIONS (4)
  - Product dose omission issue [Unknown]
  - Inability to afford medication [Unknown]
  - Product administered to patient of inappropriate age [Unknown]
  - No adverse event [Unknown]
